FAERS Safety Report 4977672-6 (Version None)
Quarter: 2006Q2

REPORT INFORMATION
  Report Type: 
  Country: None (occurrence: None)
  Receive Date: 20060420
  Receipt Date: 20050420
  Transmission Date: 20061013
  Serious: No
  Sender: FDA-Public Use
  Company Number: US-GLAXOSMITHKLINE-A0555016A

PATIENT
  Age: 39 Year
  Sex: Male

DRUGS (8)
  1. ESKALITH [Suspect]
     Dosage: 450MG FIVE TIMES PER DAY
     Route: 048
  2. WELLBUTRIN [Suspect]
     Indication: DRUG USE FOR UNKNOWN INDICATION
     Route: 065
  3. FLONASE [Concomitant]
  4. HYTRIN [Concomitant]
  5. GABITRIL [Concomitant]
  6. PRINZIDE [Concomitant]
  7. CELEXA [Concomitant]
  8. CHLORPHENIRAMINE MALEATE AND PSEUDOEPHEDRINE HCL [Concomitant]

REACTIONS (1)
  - DIARRHOEA [None]
